FAERS Safety Report 17469859 (Version 2)
Quarter: 2020Q1

REPORT INFORMATION
  Report Type: Spontaneous
  Country: ES (occurrence: ES)
  Receive Date: 20200227
  Receipt Date: 20200302
  Transmission Date: 20200409
  Serious: Yes (Other)
  Sender: FDA-Public Use
  Company Number: ES-PFIZER INC-2020081697

PATIENT
  Age: 75 Year
  Sex: Male

DRUGS (2)
  1. GEMCITABINE HYDROCHLORIDE. [Suspect]
     Active Substance: GEMCITABINE HYDROCHLORIDE
     Indication: TRANSITIONAL CELL CARCINOMA URETHRA
     Dosage: 1250 MG/M2, CYCLIC (ON DAYS 1, 8 AND 21 OF EVERY 21-DAY CYCLE)
  2. CISPLATIN. [Suspect]
     Active Substance: CISPLATIN
     Indication: TRANSITIONAL CELL CARCINOMA URETHRA
     Dosage: 75 MG/M2, CYCLIC (ON DAY 1 OF EVERY 21-DAY CYCLE)

REACTIONS (3)
  - Renal injury [Unknown]
  - Asthenia [Unknown]
  - Vomiting [Unknown]
